FAERS Safety Report 5234253-7 (Version None)
Quarter: 2007Q1

REPORT INFORMATION
  Report Type: 
  Country: None (occurrence: None)
  Receive Date: 20070207
  Receipt Date: 20070130
  Transmission Date: 20070707
  Serious: Yes (Death, Life-Threatening, Other)
  Sender: FDA-Public Use
  Company Number: MC200600912

PATIENT
  Sex: Male

DRUGS (1)
  1. ANGIOMAX [Suspect]
     Indication: PERCUTANEOUS CORONARY INTERVENTION
     Dosage: SEE IMAGE
     Route: 040
     Dates: start: 20061220, end: 20061220

REACTIONS (4)
  - CARDIAC DISORDER [None]
  - COAGULATION TIME PROLONGED [None]
  - HAEMODYNAMIC INSTABILITY [None]
  - REPERFUSION INJURY [None]
